FAERS Safety Report 12236289 (Version 1)
Quarter: 2016Q2

REPORT INFORMATION
  Report Type: Spontaneous
  Country: US (occurrence: US)
  Receive Date: 20160404
  Receipt Date: 20160404
  Transmission Date: 20160815
  Serious: No
  Sender: FDA-Public Use
  Company Number: US-GILEAD-2016-0206809

PATIENT
  Age: 16 Year
  Sex: Female

DRUGS (1)
  1. CAYSTON [Suspect]
     Active Substance: AZTREONAM
     Indication: CYSTIC FIBROSIS
     Dosage: UNK, TID
     Route: 055

REACTIONS (3)
  - Product closure removal difficult [Unknown]
  - Laceration [Unknown]
  - Product package associated injury [Unknown]
